FAERS Safety Report 10563322 (Version 3)
Quarter: 2014Q4

REPORT INFORMATION
  Report Type: Spontaneous
  Country: JP (occurrence: JP)
  Receive Date: 20141104
  Receipt Date: 20141217
  Transmission Date: 20150529
  Serious: Yes (Other)
  Sender: FDA-Public Use
  Company Number: JP-SA-2014SA150082

PATIENT
  Age: 50 Year
  Sex: Male

DRUGS (14)
  1. LYRICA [Suspect]
     Active Substance: PREGABALIN
     Indication: MUSCULOSKELETAL PAIN
     Route: 048
     Dates: start: 2013
  2. TRAMADOL HYDROCHLORIDE/PARACETAMOL [Suspect]
     Active Substance: ACETAMINOPHEN\TRAMADOL HYDROCHLORIDE
     Route: 065
  3. MYSLEE [Suspect]
     Active Substance: ZOLPIDEM TARTRATE
     Indication: INSOMNIA
     Route: 065
  4. VEGETAMIN [Suspect]
     Active Substance: CHLORPROMAZINE HYDROCHLORIDE\PHENOBARBITAL\PROMETHAZINE HYDROCHLORIDE
     Route: 065
  5. FOIPAN [Concomitant]
     Active Substance: CAMOSTAT MESYLATE
  6. DEPAS [Suspect]
     Active Substance: ETIZOLAM
     Route: 065
  7. PURSENNID [Suspect]
     Active Substance: SENNOSIDES A AND B
     Route: 065
  8. NEXIUM [Concomitant]
     Active Substance: ESOMEPRAZOLE MAGNESIUM
     Dosage: MODIFIED-RELEASE CAPSULE
  9. LYRICA [Suspect]
     Active Substance: PREGABALIN
     Indication: BACK PAIN
     Route: 048
     Dates: start: 2013
  10. OPALMON [Suspect]
     Active Substance: LIMAPROST
     Route: 065
  11. LEXOTAN [Suspect]
     Active Substance: BROMAZEPAM
     Route: 065
  12. SILECE [Suspect]
     Active Substance: FLUNITRAZEPAM
     Route: 065
  13. VOLTAREN [Suspect]
     Active Substance: DICLOFENAC SODIUM
     Route: 065
  14. RIVOTRIL [Concomitant]
     Active Substance: CLONAZEPAM

REACTIONS (2)
  - Exercise lack of [None]
  - Weight increased [Not Recovered/Not Resolved]
